FAERS Safety Report 21612504 (Version 1)
Quarter: 2022Q4

REPORT INFORMATION
  Report Type: Spontaneous
  Country: CZ (occurrence: CZ)
  Receive Date: 20221118
  Receipt Date: 20221118
  Transmission Date: 20230112
  Serious: Yes (Other)
  Sender: FDA-Public Use
  Company Number: None

PATIENT
  Age: 24 Year
  Sex: Female

DRUGS (2)
  1. AZITHROMYCIN [Suspect]
     Active Substance: AZITHROMYCIN
     Indication: Tonsillitis
     Dosage: THERAPY END DATE : NASK
     Route: 065
     Dates: start: 202201
  2. SPIKEVAX [Suspect]
     Active Substance: ELASOMERAN
     Indication: COVID-19 immunisation
     Dosage: DOSE 3, UNIT DOSE : 1 DOSAGE FORMS, FREQUENCY TIME : 1 TOTAL
     Route: 065
     Dates: start: 20211230, end: 20211230

REACTIONS (9)
  - Urticaria chronic [Not Recovered/Not Resolved]
  - Mechanical urticaria [Unknown]
  - Erythema [Unknown]
  - Urticaria [Unknown]
  - Eczema [Not Recovered/Not Resolved]
  - Rash pruritic [Not Recovered/Not Resolved]
  - Oropharyngeal pain [Unknown]
  - Tonsillitis [Unknown]
  - Pruritus [Recovered/Resolved]

NARRATIVE: CASE EVENT DATE: 20220101
